FAERS Safety Report 24613447 (Version 1)
Quarter: 2024Q4

REPORT INFORMATION
  Report Type: Spontaneous
  Country: US (occurrence: US)
  Receive Date: 20241113
  Receipt Date: 20241113
  Transmission Date: 20250115
  Serious: No
  Sender: ORPHALAN
  Company Number: US-ORPHALAN-US-ORP-23-00053

PATIENT
  Age: 43 Year
  Sex: Male

DRUGS (3)
  1. CUVRIOR [Suspect]
     Active Substance: TRIENTINE TETRAHYDROCHLORIDE
     Indication: Hepato-lenticular degeneration
     Dosage: 600 MILLIGRAM, BID
     Route: 048
     Dates: start: 20230616, end: 20231214
  2. BUPROPION [Suspect]
     Active Substance: BUPROPION
     Indication: Product used for unknown indication
     Dosage: 150 MILLIGRAM, TID
     Route: 065
     Dates: start: 20231210, end: 20231213
  3. ZINC (GLUCONATE) [Concomitant]
     Indication: Product used for unknown indication
     Dosage: 100 MILLIGRAM

REACTIONS (6)
  - Insomnia [Recovered/Resolved]
  - Anxiety [Recovered/Resolved]
  - Paraesthesia [Recovered/Resolved]
  - Tachycardia [Recovered/Resolved]
  - COVID-19 [Recovered/Resolved]
  - Product dose omission issue [Unknown]

NARRATIVE: CASE EVENT DATE: 20231103
